FAERS Safety Report 21594303 (Version 1)
Quarter: 2022Q4

REPORT INFORMATION
  Report Type: Report from Study
  Country: US (occurrence: US)
  Receive Date: 20221115
  Receipt Date: 20221115
  Transmission Date: 20230112
  Serious: No
  Sender: FDA-Public Use
  Company Number: US-Zogenix International Limited, A wholly owned subsidiary of Zogenix, Inc.-2022ZX000111

PATIENT
  Age: 48 Year
  Sex: Female
  Weight: 58 kg

DRUGS (6)
  1. FINTEPLA [Suspect]
     Active Substance: FENFLURAMINE
     Indication: Severe myoclonic epilepsy of infancy
     Dosage: 13.2 MG/DAY
     Route: 048
  2. FINTEPLA [Suspect]
     Active Substance: FENFLURAMINE
     Dosage: 2 ML IN MORNING, 2 ML AT NOON, AND 3 ML AT BEDTIME (15.4MG/DAY)
     Route: 048
     Dates: start: 20210904
  3. ZONISAMIDE [Concomitant]
     Active Substance: ZONISAMIDE
     Indication: Epilepsy
     Route: 065
     Dates: start: 2001
  4. DEPAKOTE [Concomitant]
     Active Substance: DIVALPROEX SODIUM
     Indication: Epilepsy
     Dosage: THERAPY STARTED PRIOR TO 1996
     Route: 065
  5. EPIDIOLEX [Concomitant]
     Active Substance: CANNABIDIOL
     Indication: Epilepsy
     Route: 065
     Dates: start: 2014
  6. CARNITOR [Concomitant]
     Active Substance: LEVOCARNITINE
     Indication: Nutritional supplementation
     Route: 065
     Dates: start: 2014

REACTIONS (4)
  - Aortic valve incompetence [Recovered/Resolved]
  - Tricuspid valve incompetence [Not Recovered/Not Resolved]
  - Left atrial enlargement [Not Recovered/Not Resolved]
  - Product prescribing issue [Unknown]

NARRATIVE: CASE EVENT DATE: 20210904
